FAERS Safety Report 4723403-4 (Version None)
Quarter: 2005Q3

REPORT INFORMATION
  Report Type: 
  Country: None (occurrence: None)
  Receive Date: 20050721
  Receipt Date: 20050721
  Transmission Date: 20060218
  Serious: Yes (Other)
  Sender: FDA-Public Use
  Company Number: None

PATIENT
  Age: 58 Year
  Sex: Male
  Weight: 90.7194 kg

DRUGS (15)
  1. LUPRON [Suspect]
     Indication: PROSTATE CANCER
     Dosage: Q3MO IM INJECTION
     Route: 030
     Dates: start: 20050119, end: 20050119
  2. VIT C [Concomitant]
  3. VIT D [Concomitant]
  4. VIT A B C [Concomitant]
  5. PROSTATE FORMULA [Concomitant]
  6. NPH INSULIN [Concomitant]
  7. SIMVASTATIN [Concomitant]
  8. LISINOPRIL [Concomitant]
  9. GLYBURIDE [Concomitant]
  10. METFORMIN [Concomitant]
  11. SILDENAFIL [Concomitant]
  12. TERAZOSIN HCL [Concomitant]
  13. GINSENG [Concomitant]
  14. FLAX SEED OIL [Concomitant]
  15. GREEN VEGETABLE JUICE [Concomitant]

REACTIONS (4)
  - OEDEMA PERIPHERAL [None]
  - PRURITUS [None]
  - RASH [None]
  - URTICARIA [None]
